FAERS Safety Report 4778871-9 (Version None)
Quarter: 2005Q3

REPORT INFORMATION
  Report Type: 
  Country: None (occurrence: None)
  Receive Date: 20050926
  Receipt Date: 20030805
  Transmission Date: 20060218
  Serious: Yes (Hospitalization)
  Sender: FDA-Public Use
  Company Number: US-AMGEN-US044322

PATIENT
  Sex: Female
  Weight: 81.64 kg

DRUGS (3)
  1. ENBREL [Suspect]
     Indication: RHEUMATOID ARTHRITIS
     Route: 058
     Dates: start: 20000101, end: 20030701
  2. METHOTREXATE [Concomitant]
  3. ASPIRIN [Concomitant]

REACTIONS (4)
  - DIZZINESS [None]
  - EAR INFECTION [None]
  - KNEE ARTHROPLASTY [None]
  - OTITIS MEDIA [None]
